FAERS Safety Report 10182700 (Version 1)
Quarter: 2014Q2

REPORT INFORMATION
  Report Type: Spontaneous
  Country: US (occurrence: None)
  Receive Date: 20140519
  Receipt Date: 20140519
  Transmission Date: 20141212
  Serious: Yes (Hospitalization)
  Sender: FDA-Public Use
  Company Number: None

PATIENT
  Age: 61 Year
  Sex: Male
  Weight: 102.7 kg

DRUGS (1)
  1. SAXAGLIPTIN [Suspect]
     Indication: DIABETES MELLITUS
     Route: 048
     Dates: start: 20140219, end: 20140421

REACTIONS (1)
  - Pancreatitis acute [None]
